FAERS Safety Report 4869335-2 (Version None)
Quarter: 2005Q4

REPORT INFORMATION
  Report Type: 
  Country: None (occurrence: None)
  Receive Date: 20051228
  Receipt Date: 20051228
  Transmission Date: 20060501
  Serious: Yes (Hospitalization)
  Sender: FDA-Public Use
  Company Number: None

PATIENT
  Sex: Male
  Weight: 61.2 kg

DRUGS (4)
  1. RAPAMUNE [Suspect]
     Indication: DISEASE RECURRENCE
     Dosage: 15 MG X 1 ON  12/5/2005 PO, 5 MG DAILY PO
     Route: 048
     Dates: start: 20051205, end: 20051205
  2. RAPAMUNE [Suspect]
     Indication: DISEASE RECURRENCE
     Dosage: 15 MG X 1 ON  12/5/2005 PO, 5 MG DAILY PO
     Route: 048
     Dates: start: 20051206, end: 20051227
  3. OCEAN NASAL SPRAY [Concomitant]
  4. VASELINE OINTMENT [Concomitant]

REACTIONS (5)
  - EPISTAXIS [None]
  - GINGIVAL BLEEDING [None]
  - HAEMORRHAGIC DIATHESIS [None]
  - HYPOTENSION [None]
  - INCREASED TENDENCY TO BRUISE [None]
